FAERS Safety Report 5115491-0 (Version None)
Quarter: 2006Q3

REPORT INFORMATION
  Report Type: 
  Country: None (occurrence: None)
  Receive Date: 20060927
  Receipt Date: 20060915
  Transmission Date: 20061208
  Serious: Yes (Hospitalization)
  Sender: FDA-Public Use
  Company Number: PHNR2006AU01252

PATIENT
  Age: 50 Year
  Sex: Male
  Weight: 99 kg

DRUGS (1)
  1. VOLTAREN [Suspect]
     Indication: PAIN
     Dates: start: 20060529, end: 20060618

REACTIONS (4)
  - HAEMORRHAGE [None]
  - OESOPHAGEAL ULCER [None]
  - OESOPHAGEAL ULCER HAEMORRHAGE [None]
  - SYNCOPE [None]
